FAERS Safety Report 11419163 (Version 2)
Quarter: 2015Q3

REPORT INFORMATION
  Report Type: Spontaneous
  Country: JP (occurrence: JP)
  Receive Date: 20150826
  Receipt Date: 20150902
  Transmission Date: 20151125
  Serious: No
  Sender: FDA-Public Use
  Company Number: PHJP2015JP013830

PATIENT
  Age: 42 Year
  Sex: Male

DRUGS (2)
  1. GILENYA [Suspect]
     Active Substance: FINGOLIMOD HYDROCHLORIDE
     Indication: MULTIPLE SCLEROSIS
     Dosage: 0.5 MG, QD
     Route: 048
     Dates: start: 20120418
  2. GILENYA [Suspect]
     Active Substance: FINGOLIMOD HYDROCHLORIDE
     Dosage: 5 TIMES WEEKLY (MONDAY AND THURSDAY OFF)
     Route: 048
     Dates: start: 20150713

REACTIONS (2)
  - Prescribed underdose [Unknown]
  - Blood creatinine abnormal [Not Recovered/Not Resolved]

NARRATIVE: CASE EVENT DATE: 20150713
